FAERS Safety Report 7102658-5 (Version None)
Quarter: 2010Q4

REPORT INFORMATION
  Report Type: 
  Country: None (occurrence: None)
  Receive Date: 20101115
  Receipt Date: 20070521
  Transmission Date: 20110411
  Serious: Yes (Life-Threatening, Hospitalization, Other)
  Sender: FDA-Public Use
  Company Number: PHRM2007FR01467

PATIENT
  Age: 68 Year
  Sex: Male

DRUGS (8)
  1. NISISCO [Suspect]
     Indication: HYPERTENSION
     Route: 048
  2. LOPRESSOR [Suspect]
     Indication: HYPERTENSION
     Route: 048
     Dates: end: 20061201
  3. AMLOR [Suspect]
     Route: 048
     Dates: end: 20061201
  4. DILTIAZEM HCL [Suspect]
     Route: 048
     Dates: end: 20061201
  5. KARDEGIC [Concomitant]
     Route: 048
     Dates: end: 20061201
  6. CRESTOR [Concomitant]
     Route: 048
     Dates: end: 20061201
  7. MIXTARD /POL/ [Concomitant]
     Indication: TYPE 1 DIABETES MELLITUS
     Route: 058
  8. LASIX [Concomitant]
     Route: 048
     Dates: end: 20061201

REACTIONS (10)
  - ABDOMINAL PAIN [None]
  - ATRIOVENTRICULAR BLOCK FIRST DEGREE [None]
  - BLOOD CREATININE INCREASED [None]
  - BLOOD UREA INCREASED [None]
  - BRADYCARDIA [None]
  - CARDIAC ARREST [None]
  - HYPERKALAEMIA [None]
  - HYPOTENSION [None]
  - KETOACIDOSIS [None]
  - RENAL FAILURE ACUTE [None]
